FAERS Safety Report 6578269-7 (Version None)
Quarter: 2010Q1

REPORT INFORMATION
  Report Type: 
  Country: None (occurrence: None)
  Receive Date: 20100211
  Receipt Date: 20100205
  Transmission Date: 20100710
  Serious: Yes (Hospitalization, Other)
  Sender: FDA-Public Use
  Company Number: B0611877A

PATIENT
  Sex: Female
  Weight: 53 kg

DRUGS (5)
  1. TYKERB [Suspect]
     Indication: BREAST CANCER
     Dosage: 1250MG PER DAY
     Route: 048
     Dates: start: 20091022, end: 20091109
  2. XELODA [Concomitant]
     Indication: BREAST CANCER
     Dosage: 1200MG PER DAY
     Route: 048
     Dates: start: 20091022, end: 20091119
  3. TOREMIFENE CITRATE [Concomitant]
     Route: 048
     Dates: end: 20091106
  4. RIMATIL [Concomitant]
     Indication: RHEUMATOID ARTHRITIS
     Route: 048
     Dates: end: 20091106
  5. HUMULIN R [Concomitant]
     Indication: DIABETES MELLITUS
     Route: 058

REACTIONS (7)
  - CARDIAC FAILURE [None]
  - EJECTION FRACTION DECREASED [None]
  - OEDEMA PERIPHERAL [None]
  - PAINFUL RESPIRATION [None]
  - PULMONARY CONGESTION [None]
  - STRESS CARDIOMYOPATHY [None]
  - WHEEZING [None]
